FAERS Safety Report 21050934 (Version 1)
Quarter: 2022Q3

REPORT INFORMATION
  Report Type: Spontaneous
  Country: IT (occurrence: IT)
  Receive Date: 20220707
  Receipt Date: 20220707
  Transmission Date: 20221027
  Serious: Yes (Hospitalization)
  Sender: FDA-Public Use
  Company Number: IT-TEVA-2022-IT-2052196

PATIENT

DRUGS (3)
  1. RISPERIDONE [Interacting]
     Active Substance: RISPERIDONE
     Indication: Schizoaffective disorder
     Dosage: DEFINED DAILY DOSE: 5MG
     Route: 065
  2. LITHIUM CARBONATE [Interacting]
     Active Substance: LITHIUM CARBONATE
     Indication: Schizoaffective disorder
     Route: 065
  3. CLOZAPINE [Interacting]
     Active Substance: CLOZAPINE
     Indication: Schizoaffective disorder
     Route: 065

REACTIONS (2)
  - Dystonia [Unknown]
  - Drug interaction [Unknown]
